FAERS Safety Report 7722919-6 (Version None)
Quarter: 2011Q3

REPORT INFORMATION
  Report Type: 
  Country: None (occurrence: None)
  Receive Date: 20110901
  Receipt Date: 20091109
  Transmission Date: 20111222
  Serious: No
  Sender: FDA-Public Use
  Company Number: 2009BI037221

PATIENT
  Sex: Female

DRUGS (1)
  1. TYSABRI [Suspect]
     Indication: MULTIPLE SCLEROSIS
     Route: 042
     Dates: start: 20090410

REACTIONS (7)
  - VIBRATORY SENSE INCREASED [None]
  - FATIGUE [None]
  - PAIN IN EXTREMITY [None]
  - GENERAL SYMPTOM [None]
  - PERIPHERAL COLDNESS [None]
  - EAR PAIN [None]
  - FACIAL PAIN [None]
